FAERS Safety Report 9030430 (Version 1)
Quarter: 2013Q1

REPORT INFORMATION
  Report Type: Spontaneous
  Country: SE (occurrence: SE)
  Receive Date: 20130122
  Receipt Date: 20130122
  Transmission Date: 20140127
  Serious: Yes (Other)
  Sender: FDA-Public Use
  Company Number: SE-ASTRAZENECA-2013SE03715

PATIENT
  Age: 57 Year
  Sex: Female

DRUGS (5)
  1. OMEPRAZOLE [Suspect]
     Route: 048
  2. GABAPENTIN ACTAVIS [Concomitant]
  3. ALVEDON [Concomitant]
  4. SALURES [Concomitant]
  5. VOLTAREN [Concomitant]

REACTIONS (2)
  - Osteoporosis [Unknown]
  - Pathological fracture [Unknown]
